FAERS Safety Report 10551099 (Version 4)
Quarter: 2015Q3

REPORT INFORMATION
  Report Type: Report from Study
  Country: US (occurrence: US)
  Receive Date: 20141029
  Receipt Date: 20150914
  Transmission Date: 20151125
  Serious: No
  Sender: FDA-Public Use
  Company Number: US-AMGEN INC.-USASL2014082986

PATIENT
  Age: 68 Year
  Sex: Female

DRUGS (1)
  1. ENBREL [Suspect]
     Active Substance: ETANERCEPT
     Indication: RHEUMATOID ARTHRITIS
     Dosage: 50 MG, QWK
     Route: 065
     Dates: start: 20141006, end: 201501

REACTIONS (6)
  - Injection site reaction [Recovered/Resolved]
  - Headache [Not Recovered/Not Resolved]
  - Drug effect incomplete [Unknown]
  - Pruritus [Not Recovered/Not Resolved]
  - Injection site erythema [Recovered/Resolved]
  - Injection site rash [Unknown]

NARRATIVE: CASE EVENT DATE: 201410
